FAERS Safety Report 22643310 (Version 1)
Quarter: 2023Q2

REPORT INFORMATION
  Report Type: Report from Study
  Country: TW (occurrence: TW)
  Receive Date: 20230627
  Receipt Date: 20230627
  Transmission Date: 20230721
  Serious: Yes (Hospitalization, Other)
  Sender: FDA-Public Use
  Company Number: TW-TAKEDA-2023TUS060175

PATIENT
  Sex: Male

DRUGS (64)
  1. IDURSULFASE [Suspect]
     Active Substance: IDURSULFASE
     Indication: Mucopolysaccharidosis II
     Dosage: 0.37 MILLIGRAM/KILOGRAM, 1/WEEK
     Route: 042
     Dates: start: 20070802
  2. IDURSULFASE [Suspect]
     Active Substance: IDURSULFASE
     Dosage: 0.52 MILLIGRAM/KILOGRAM, 1/WEEK
     Route: 042
     Dates: start: 20220326
  3. AMOXICILLIN [Concomitant]
     Active Substance: AMOXICILLIN
     Indication: Infection
     Dosage: UNK
     Route: 048
  4. AMOXICILLIN [Concomitant]
     Active Substance: AMOXICILLIN
     Dosage: UNK
     Route: 048
     Dates: start: 20090828, end: 20090831
  5. AMOXICILLIN [Concomitant]
     Active Substance: AMOXICILLIN
     Dosage: UNK
     Route: 048
     Dates: start: 20100128
  6. AMOXICILLIN [Concomitant]
     Active Substance: AMOXICILLIN
     Dosage: UNK
     Route: 048
     Dates: start: 20100523, end: 20100530
  7. AMOXICILLIN [Concomitant]
     Active Substance: AMOXICILLIN
     Dosage: UNK
     Route: 048
     Dates: start: 20110518, end: 20110520
  8. AMOXICILLIN [Concomitant]
     Active Substance: AMOXICILLIN
     Dosage: UNK
     Route: 048
     Dates: start: 20121006, end: 20121013
  9. CHLORPHENIRAMINE MALEATE [Concomitant]
     Active Substance: CHLORPHENIRAMINE MALEATE
     Indication: Premedication
     Dosage: UNK
     Route: 042
  10. DIETARY SUPPLEMENT\PROBIOTICS [Concomitant]
     Active Substance: DIETARY SUPPLEMENT\PROBIOTICS NOS
     Indication: Gastrointestinal disorder
     Dosage: UNK
     Route: 048
     Dates: start: 20080621, end: 20080627
  11. CHLORPHENIRAMINE MALEATE [Concomitant]
     Active Substance: CHLORPHENIRAMINE MALEATE
     Indication: Premedication
     Dosage: UNK
     Route: 042
     Dates: start: 20090320
  12. CHLORPHENIRAMINE MALEATE [Concomitant]
     Active Substance: CHLORPHENIRAMINE MALEATE
     Dosage: UNK
     Route: 042
     Dates: start: 20100306, end: 20100306
  13. CETIRIZINE HYDROCHLORIDE [Concomitant]
     Active Substance: CETIRIZINE HYDROCHLORIDE
     Indication: Respiratory disorder
     Dosage: UNK
     Route: 048
     Dates: start: 20090502, end: 20090503
  14. XYZAL [Concomitant]
     Active Substance: LEVOCETIRIZINE DIHYDROCHLORIDE
     Indication: Respiratory disorder
     Dosage: UNK
     Route: 048
     Dates: start: 20090514, end: 20090726
  15. XYZAL [Concomitant]
     Active Substance: LEVOCETIRIZINE DIHYDROCHLORIDE
     Dosage: UNK
     Route: 048
     Dates: start: 20120114, end: 20120121
  16. XYZAL [Concomitant]
     Active Substance: LEVOCETIRIZINE DIHYDROCHLORIDE
     Dosage: UNK
     Route: 048
     Dates: start: 20120420, end: 20120524
  17. XYZAL [Concomitant]
     Active Substance: LEVOCETIRIZINE DIHYDROCHLORIDE
     Dosage: UNK
     Route: 048
     Dates: start: 20121031, end: 20121106
  18. ACETYLCYSTEINE [Concomitant]
     Active Substance: ACETYLCYSTEINE
     Indication: Respiratory disorder
     Dosage: UNK
     Route: 048
     Dates: start: 20090522, end: 20090530
  19. ACETYLCYSTEINE [Concomitant]
     Active Substance: ACETYLCYSTEINE
     Indication: Productive cough
     Dosage: UNK
     Route: 048
     Dates: start: 20110416, end: 20110820
  20. ACETYLCYSTEINE [Concomitant]
     Active Substance: ACETYLCYSTEINE
     Dosage: UNK
     Route: 048
     Dates: start: 20111210, end: 20120107
  21. ACETYLCYSTEINE [Concomitant]
     Active Substance: ACETYLCYSTEINE
     Dosage: UNK
     Route: 048
     Dates: start: 20120420, end: 20120524
  22. ACETYLCYSTEINE [Concomitant]
     Active Substance: ACETYLCYSTEINE
     Dosage: UNK
     Route: 048
     Dates: start: 20130504, end: 20130511
  23. ACETYLCYSTEINE [Concomitant]
     Active Substance: ACETYLCYSTEINE
     Dosage: UNK
     Route: 048
     Dates: start: 20131012, end: 20131019
  24. ACETYLCYSTEINE [Concomitant]
     Active Substance: ACETYLCYSTEINE
     Dosage: UNK
     Route: 048
     Dates: start: 20140203, end: 20140210
  25. ACETYLCYSTEINE [Concomitant]
     Active Substance: ACETYLCYSTEINE
     Dosage: UNK
     Route: 048
     Dates: start: 20141206, end: 20141211
  26. OFLOXACIN [Concomitant]
     Active Substance: OFLOXACIN
     Indication: Infection
     Dosage: UNK
     Route: 050
     Dates: start: 20090522, end: 20090529
  27. OFLOXACIN [Concomitant]
     Active Substance: OFLOXACIN
     Dosage: UNK
     Route: 065
     Dates: start: 20090827, end: 20090828
  28. ACETAMINOPHEN [Concomitant]
     Active Substance: ACETAMINOPHEN
     Indication: Pyrexia
     Dosage: UNK
     Route: 048
     Dates: start: 20090827, end: 20090828
  29. ACETAMINOPHEN [Concomitant]
     Active Substance: ACETAMINOPHEN
     Indication: Pain
     Dosage: UNK
     Route: 048
     Dates: start: 20090910
  30. ACETAMINOPHEN [Concomitant]
     Active Substance: ACETAMINOPHEN
     Dosage: UNK
     Route: 048
     Dates: start: 20140129, end: 20140212
  31. ACETAMINOPHEN [Concomitant]
     Active Substance: ACETAMINOPHEN
     Dosage: UNK
     Route: 048
     Dates: start: 20140829, end: 20140902
  32. CEFADROXIL [Concomitant]
     Active Substance: CEFADROXIL
     Indication: Infection
     Dosage: UNK
     Route: 048
     Dates: start: 20090827, end: 20090828
  33. Rotec [Concomitant]
     Indication: Respiratory disorder
     Dosage: UNK
     Route: 048
     Dates: start: 20100111
  34. AUGMENTIN [Concomitant]
     Active Substance: AMOXICILLIN\CLAVULANATE POTASSIUM
     Indication: Respiratory disorder
     Dosage: UNK
     Route: 048
     Dates: start: 20100124
  35. AUGMENTIN [Concomitant]
     Active Substance: AMOXICILLIN\CLAVULANATE POTASSIUM
     Indication: Infection
     Dosage: UNK
     Route: 048
     Dates: start: 20110416, end: 20110716
  36. AUGMENTIN [Concomitant]
     Active Substance: AMOXICILLIN\CLAVULANATE POTASSIUM
     Dosage: UNK
     Route: 048
     Dates: start: 20120829, end: 20120905
  37. AUGMENTIN [Concomitant]
     Active Substance: AMOXICILLIN\CLAVULANATE POTASSIUM
     Dosage: UNK
     Route: 048
     Dates: start: 20121107, end: 20121117
  38. AUGMENTIN [Concomitant]
     Active Substance: AMOXICILLIN\CLAVULANATE POTASSIUM
     Dosage: UNK
     Route: 048
     Dates: start: 20130626, end: 20130702
  39. AUGMENTIN [Concomitant]
     Active Substance: AMOXICILLIN\CLAVULANATE POTASSIUM
     Dosage: UNK
     Route: 048
     Dates: start: 20131016, end: 20131023
  40. AUGMENTIN [Concomitant]
     Active Substance: AMOXICILLIN\CLAVULANATE POTASSIUM
     Dosage: UNK
     Route: 048
     Dates: start: 20140129, end: 20140212
  41. AUGMENTIN [Concomitant]
     Active Substance: AMOXICILLIN\CLAVULANATE POTASSIUM
     Dosage: UNK
     Route: 048
     Dates: start: 20140430, end: 20140504
  42. Brown mixture [Concomitant]
     Indication: Respiratory disorder
     Dosage: UNK
     Route: 048
     Dates: start: 20100709
  43. SCANOL [Concomitant]
     Indication: Pain
     Dosage: UNK
     Route: 048
     Dates: start: 20110518, end: 20110520
  44. CETIZIN [Concomitant]
     Indication: Respiratory disorder
     Dosage: UNK
     Route: 048
     Dates: start: 20110806, end: 20110813
  45. CALCIUM [Concomitant]
     Active Substance: CALCIUM
     Indication: Osteoporosis
     Dosage: UNK
     Route: 048
     Dates: start: 20110827, end: 20110924
  46. HEPARINOID [Concomitant]
     Indication: Infection
     Dosage: UNK
     Route: 061
     Dates: start: 20111112
  47. CHLORAMPHENICOL [Concomitant]
     Active Substance: CHLORAMPHENICOL
     Indication: Infection
     Dosage: UNK
     Route: 050
     Dates: start: 20120211, end: 20120218
  48. ALLEGRA [Concomitant]
     Active Substance: FEXOFENADINE HYDROCHLORIDE
     Indication: Respiratory disorder
     Dosage: UNK
     Route: 048
     Dates: start: 20120324, end: 20120401
  49. ALLEGRA [Concomitant]
     Active Substance: FEXOFENADINE HYDROCHLORIDE
     Dosage: UNK
     Route: 048
     Dates: start: 20120822, end: 20120829
  50. FLUTICASONE FUROATE [Concomitant]
     Active Substance: FLUTICASONE FUROATE
     Indication: Respiratory disorder
     Dosage: UNK
     Route: 065
     Dates: start: 20120420, end: 20120524
  51. ACTEIN [Concomitant]
     Indication: Respiratory disorder
     Dosage: UNK
     Route: 048
     Dates: start: 20121031, end: 20121106
  52. EXELDERM [Concomitant]
     Active Substance: SULCONAZOLE NITRATE
     Indication: Respiratory disorder
     Dosage: UNK
     Route: 061
     Dates: start: 20121124, end: 20121208
  53. HIROS [Concomitant]
     Indication: Respiratory disorder
     Dosage: UNK
     Route: 065
     Dates: start: 20121215, end: 20121218
  54. AZITHROMYCIN [Concomitant]
     Active Substance: AZITHROMYCIN
     Indication: Infection
     Dosage: UNK
     Route: 048
     Dates: start: 20130504, end: 20130511
  55. CHLORPHENIRAMINE MALEATE [Concomitant]
     Active Substance: CHLORPHENIRAMINE MALEATE
     Indication: Antiallergic therapy
     Dosage: UNK
     Route: 048
     Dates: start: 20130529, end: 20130713
  56. CHLORPHENIRAMINE MALEATE [Concomitant]
     Active Substance: CHLORPHENIRAMINE MALEATE
     Dosage: UNK
     Route: 042
     Dates: start: 20140208, end: 20140222
  57. MOMETASONE FUROATE MONOHYDRATE [Concomitant]
     Active Substance: MOMETASONE FUROATE MONOHYDRATE
     Dosage: UNK
     Route: 048
     Dates: start: 20130727, end: 20130730
  58. OXETHAZAINE [Concomitant]
     Active Substance: OXETHAZAINE
     Indication: Antacid therapy
     Dosage: UNK
     Route: 048
     Dates: start: 20140203, end: 20140210
  59. LEVOCETIRIZINE DIHYDROCHLORIDE [Concomitant]
     Active Substance: LEVOCETIRIZINE DIHYDROCHLORIDE
     Indication: Antiallergic therapy
     Dosage: UNK
     Route: 048
     Dates: start: 20140305, end: 20140312
  60. ECONAZOLE [Concomitant]
     Active Substance: ECONAZOLE
     Indication: Antifungal prophylaxis
     Dosage: UNK
     Route: 048
     Dates: start: 20140426, end: 20140529
  61. BETAMETHASONE [Concomitant]
     Active Substance: BETAMETHASONE
     Indication: Antiallergic therapy
     Dosage: UNK
     Route: 048
     Dates: start: 20140426, end: 20140509
  62. NEOMYCIN [Concomitant]
     Active Substance: NEOMYCIN
     Indication: Infection
     Dosage: UNK
     Route: 048
     Dates: start: 20140705, end: 20140708
  63. OXETHAZAINE [Concomitant]
     Active Substance: OXETHAZAINE
     Indication: Abdominal discomfort
     Dosage: UNK
     Route: 048
     Dates: start: 20140823, end: 20140826
  64. TRIAMCINOLONE ACETONIDE [Concomitant]
     Active Substance: TRIAMCINOLONE ACETONIDE
     Dosage: UNK
     Route: 048
     Dates: start: 20140823, end: 20140826

REACTIONS (1)
  - Otitis media [Recovered/Resolved]

NARRATIVE: CASE EVENT DATE: 20130605
